FAERS Safety Report 5960795-2 (Version None)
Quarter: 2008Q4

REPORT INFORMATION
  Report Type: 
  Country: None (occurrence: None)
  Receive Date: 20081120
  Receipt Date: 20081112
  Transmission Date: 20090506
  Serious: Yes (Other)
  Sender: FDA-Public Use
  Company Number: DE-AMGEN-UK308609

PATIENT
  Sex: Female
  Weight: 84 kg

DRUGS (18)
  1. MIMPARA [Suspect]
     Indication: PARATHYROID TUMOUR MALIGNANT
     Route: 048
     Dates: start: 20060202, end: 20070129
  2. ATACAND [Concomitant]
     Route: 048
  3. FLUVASTATIN SODIUM [Concomitant]
     Route: 048
  4. LEVOTHYROXINE SODIUM [Concomitant]
     Route: 048
  5. METOPROLOL TARTRATE [Concomitant]
     Route: 048
  6. FELODIPINE [Concomitant]
     Route: 048
  7. PANTOZOL [Concomitant]
     Route: 048
  8. RENAGEL [Concomitant]
     Route: 048
  9. TOREM [Concomitant]
     Route: 048
  10. ERYPO [Concomitant]
     Route: 042
  11. SELENIUM [Concomitant]
     Route: 042
  12. DEKRISTOL [Concomitant]
     Route: 048
  13. IBANDRONATE SODIUM [Concomitant]
     Route: 042
  14. ZEMPLAR [Concomitant]
     Route: 042
  15. FERROUS GLUCONATE [Concomitant]
     Route: 042
  16. NUTRITIONAL SUPPLEMENT [Concomitant]
     Route: 048
  17. VANCOMYCIN [Concomitant]
     Route: 042
  18. HEPARIN [Concomitant]

REACTIONS (3)
  - ANOREXIA [None]
  - NAUSEA [None]
  - VOMITING [None]
